FAERS Safety Report 19791336 (Version 1)
Quarter: 2021Q3

REPORT INFORMATION
  Report Type: Spontaneous
  Country: US (occurrence: US)
  Receive Date: 20210906
  Receipt Date: 20210906
  Transmission Date: 20211014
  Serious: No
  Sender: FDA-Public Use
  Company Number: US-ORGANON-O2108USA002348

PATIENT
  Age: 44 Year
  Sex: Female
  Weight: 119.74 kg

DRUGS (1)
  1. NEXPLANON [Suspect]
     Active Substance: ETONOGESTREL
     Dosage: 68 MG ROD; RIGHT ARM
     Route: 059
     Dates: start: 20210827

REACTIONS (3)
  - Complication of device insertion [Not Recovered/Not Resolved]
  - Product quality issue [Unknown]
  - No adverse event [Unknown]

NARRATIVE: CASE EVENT DATE: 20210827
